FAERS Safety Report 21991200 (Version 1)
Quarter: 2023Q1

REPORT INFORMATION
  Report Type: Spontaneous
  Country: US (occurrence: None)
  Receive Date: 20230213
  Receipt Date: 20230213
  Transmission Date: 20230418
  Serious: Yes (Hospitalization)
  Sender: FDA-Public Use
  Company Number: None

PATIENT
  Age: 55 Year
  Sex: Female

DRUGS (2)
  1. TOPAMAX [Suspect]
     Active Substance: TOPIRAMATE
     Indication: Migraine
     Dates: start: 20150910, end: 20220701
  2. PHENTERMINE [Suspect]
     Active Substance: PHENTERMINE
     Indication: Weight decreased

REACTIONS (1)
  - Heart valve incompetence [None]

NARRATIVE: CASE EVENT DATE: 20220928
